FAERS Safety Report 14220946 (Version 1)
Quarter: 2017Q4

REPORT INFORMATION
  Report Type: Spontaneous
  Country: US (occurrence: US)
  Receive Date: 20171124
  Receipt Date: 20171124
  Transmission Date: 20180321
  Serious: No
  Sender: FDA-Public Use
  Company Number: US-009507513-1711USA010298

PATIENT
  Age: 12 Year

DRUGS (4)
  1. TRUSOPT [Suspect]
     Active Substance: DORZOLAMIDE HYDROCHLORIDE
     Indication: MACULAR CYST
  2. TRUSOPT [Suspect]
     Active Substance: DORZOLAMIDE HYDROCHLORIDE
     Indication: RETINAL DYSTROPHY
     Dosage: UNK UNK, BID 1 MONTH
     Route: 047
  3. ACETAZOLAMIDE. [Concomitant]
     Active Substance: ACETAZOLAMIDE
     Indication: RETINAL DYSTROPHY
     Dosage: 7?15 MG/KG/DAY AS A SINGLE MORNING DOSE UP TO A MAXIMUM OF 500 MG, QAM
     Route: 048
  4. ACETAZOLAMIDE. [Concomitant]
     Active Substance: ACETAZOLAMIDE
     Indication: MACULAR CYST

REACTIONS (1)
  - Off label use [Unknown]
